FAERS Safety Report 8594083-5 (Version None)
Quarter: 2012Q3

REPORT INFORMATION
  Report Type: 
  Country: None (occurrence: None)
  Receive Date: 20120814
  Receipt Date: 20120730
  Transmission Date: 20120928
  Serious: Yes (Other)
  Sender: FDA-Public Use
  Company Number: FR-WATSON-2012-14093

PATIENT
  Age: 17 Year

DRUGS (3)
  1. MINOCYCLINE HCL [Suspect]
     Indication: PYREXIA
  2. MINOCYCLINE HCL [Suspect]
     Indication: BACK PAIN
  3. MINOCYCLINE HCL [Suspect]
     Indication: PROPHYLAXIS
     Dosage: 200 MG, DAILY
     Route: 065

REACTIONS (4)
  - ASTHENIA [None]
  - COUGH [None]
  - MYALGIA [None]
  - PERICARDITIS [None]
